FAERS Safety Report 14012152 (Version 2)
Quarter: 2017Q4

REPORT INFORMATION
  Report Type: Spontaneous
  Country: US (occurrence: US)
  Receive Date: 20170926
  Receipt Date: 20171004
  Transmission Date: 20180321
  Serious: No
  Sender: FDA-Public Use
  Company Number: US-ELI_LILLY_AND_COMPANY-US201709006461

PATIENT
  Age: 40 Year
  Sex: Female

DRUGS (1)
  1. HUMULIN N [Suspect]
     Active Substance: INSULIN HUMAN
     Indication: GESTATIONAL DIABETES
     Dosage: UNK UNK, UNKNOWN
     Route: 058

REACTIONS (3)
  - Drug dose omission [Unknown]
  - Product storage error [Unknown]
  - Maternal exposure timing unspecified [Unknown]

NARRATIVE: CASE EVENT DATE: 201709
